FAERS Safety Report 15402487 (Version 1)
Quarter: 2018Q3

REPORT INFORMATION
  Report Type: Spontaneous
  Country: US (occurrence: US)
  Receive Date: 20180916
  Receipt Date: 20180916
  Transmission Date: 20181010
  Serious: Yes (Disabling, Other)
  Sender: FDA-Public Use
  Company Number: None

PATIENT
  Age: 70 Year
  Sex: Female
  Weight: 85.5 kg

DRUGS (14)
  1. LOSARTAN. [Concomitant]
     Active Substance: LOSARTAN
  2. FUROSEMIDE. [Concomitant]
     Active Substance: FUROSEMIDE
  3. PREDNISONE. [Concomitant]
     Active Substance: PREDNISONE
  4. PANTOPRAZOLE [Concomitant]
     Active Substance: PANTOPRAZOLE
  5. VITAMIN B12 [Concomitant]
     Active Substance: CYANOCOBALAMIN
  6. HUMIRA [Suspect]
     Active Substance: ADALIMUMAB
     Indication: RHEUMATOID ARTHRITIS
     Dosage: ?          QUANTITY:1 INJECTION(S);OTHER FREQUENCY:EVERY 2 WEEKS;?
     Route: 058
     Dates: start: 20171213, end: 20180823
  7. METRONIDAZE LOTION [Concomitant]
  8. VITAMIN D3 [Concomitant]
     Active Substance: CHOLECALCIFEROL
  9. SIMVASTIN [Concomitant]
     Active Substance: SIMVASTATIN
  10. PREMARIN [Concomitant]
     Active Substance: ESTROGENS, CONJUGATED
  11. POTASSIUM CHLORIDE. [Concomitant]
     Active Substance: POTASSIUM CHLORIDE
  12. ACEBUTOLOL [Concomitant]
     Active Substance: ACEBUTOLOL
  13. ALLOPURINOL. [Concomitant]
     Active Substance: ALLOPURINOL
  14. BIOTIN [Concomitant]
     Active Substance: BIOTIN

REACTIONS (4)
  - Amnesia [None]
  - Feeling abnormal [None]
  - Impaired driving ability [None]
  - Visual impairment [None]

NARRATIVE: CASE EVENT DATE: 20180614
